FAERS Safety Report 12373037 (Version 2)
Quarter: 2016Q2

REPORT INFORMATION
  Report Type: Spontaneous
  Country: FR (occurrence: FR)
  Receive Date: 20160516
  Receipt Date: 20160526
  Transmission Date: 20160815
  Serious: Yes (Hospitalization, Other)
  Sender: FDA-Public Use
  Company Number: FR-PFIZER INC-2016118251

PATIENT
  Age: 8 Year
  Sex: Female

DRUGS (4)
  1. IMETH [Suspect]
     Active Substance: METHOTREXATE SODIUM
     Dosage: 30 MG, WEEKLY
     Route: 048
     Dates: start: 20151218, end: 20160120
  2. IMETH [Suspect]
     Active Substance: METHOTREXATE SODIUM
     Indication: B-CELL TYPE ACUTE LEUKAEMIA
     Dosage: 25 MG, WEEKLY
     Route: 048
     Dates: start: 20141030, end: 20151218
  3. PURINETHOL [Suspect]
     Active Substance: MERCAPTOPURINE
     Indication: B-CELL TYPE ACUTE LEUKAEMIA
     Dosage: 87.5 MG, DAILY
     Route: 048
     Dates: start: 20141030, end: 20151218
  4. PURINETHOL [Suspect]
     Active Substance: MERCAPTOPURINE
     Dosage: 112.5 MG, DAILY
     Route: 048
     Dates: start: 20151218, end: 20160130

REACTIONS (6)
  - Product use issue [Unknown]
  - Hepatocellular injury [Recovered/Resolved]
  - Jaundice [Recovered/Resolved]
  - Abdominal pain [Unknown]
  - Diarrhoea [Recovered/Resolved]
  - Vomiting [Unknown]

NARRATIVE: CASE EVENT DATE: 20151116
